FAERS Safety Report 7579999-0 (Version None)
Quarter: 2011Q2

REPORT INFORMATION
  Report Type: 
  Country: None (occurrence: None)
  Receive Date: 20110629
  Receipt Date: 20110625
  Transmission Date: 20111010
  Serious: Yes (Other)
  Sender: FDA-Public Use
  Company Number: US-JNJFOC-20110508549

PATIENT
  Sex: Female

DRUGS (10)
  1. BUSPAR [Concomitant]
     Indication: DEPRESSION
     Dates: start: 20100101
  2. TRICOR [Concomitant]
     Indication: BLOOD TRIGLYCERIDES INCREASED
  3. STELARA [Suspect]
     Indication: PSORIASIS
     Route: 058
     Dates: start: 20091101, end: 20101201
  4. PROZAC [Concomitant]
     Indication: DEPRESSION
  5. PROZAC [Concomitant]
     Indication: ANXIETY
  6. PAXIL [Concomitant]
     Indication: DEPRESSION
  7. NEXIUM [Concomitant]
     Indication: GASTROOESOPHAGEAL REFLUX DISEASE
  8. PAXIL [Concomitant]
     Indication: ANXIETY
  9. SYNTHROID [Concomitant]
     Indication: HYPOTHYROIDISM
     Dates: start: 19820101
  10. INDERAL [Concomitant]
     Indication: TREMOR

REACTIONS (1)
  - BENIGN BREAST NEOPLASM [None]
